FAERS Safety Report 16408086 (Version 2)
Quarter: 2019Q2

REPORT INFORMATION
  Report Type: Spontaneous
  Country: IT (occurrence: IT)
  Receive Date: 20190610
  Receipt Date: 20190624
  Transmission Date: 20190711
  Serious: Yes (Other)
  Sender: FDA-Public Use
  Company Number: IT-ASTRAZENECA-2019SE83135

PATIENT
  Age: 72 Year
  Sex: Male

DRUGS (7)
  1. CARDIOASPIRIN [Concomitant]
     Active Substance: ASPIRIN
     Route: 048
  2. CITALOPRAM [Concomitant]
     Active Substance: CITALOPRAM HYDROBROMIDE
     Route: 048
  3. AMIODARONE HYDROCHLORIDE. [Concomitant]
     Active Substance: AMIODARONE HYDROCHLORIDE
     Route: 048
  4. AMLODIPINE [Concomitant]
     Active Substance: AMLODIPINE BESYLATE
     Route: 048
  5. RAMIPRIL. [Concomitant]
     Active Substance: RAMIPRIL
     Indication: HYPERTENSION
     Route: 048
  6. ESOMEPRAZOLE MAGNESIUM. [Suspect]
     Active Substance: ESOMEPRAZOLE MAGNESIUM
     Indication: CHRONIC GASTRITIS
     Route: 048
     Dates: end: 20190526
  7. KCL-RETARD [Concomitant]
     Active Substance: POTASSIUM CHLORIDE
     Route: 048

REACTIONS (3)
  - Periorbital swelling [Recovered/Resolved]
  - Dysphagia [Recovered/Resolved]
  - Odynophagia [Recovered/Resolved]

NARRATIVE: CASE EVENT DATE: 20190526
